FAERS Safety Report 24424627 (Version 1)
Quarter: 2024Q4

REPORT INFORMATION
  Report Type: Spontaneous
  Country: ES (occurrence: ES)
  Receive Date: 20241010
  Receipt Date: 20241010
  Transmission Date: 20250115
  Serious: Yes (Life-Threatening, Hospitalization)
  Sender: SANDOZ
  Company Number: ES-SANDOZ-SDZ2024ES086199

PATIENT
  Age: 27 Year
  Sex: Male
  Weight: 106.2 kg

DRUGS (2)
  1. BROMAZEPAM [Suspect]
     Active Substance: BROMAZEPAM
     Indication: Suicidal ideation
     Dosage: UNK (20TABLETS/30 MG)
     Route: 048
     Dates: start: 20240305, end: 20240305
  2. ACETAMINOPHEN [Suspect]
     Active Substance: ACETAMINOPHEN
     Indication: Suicidal ideation
     Dosage: UNK (X 45 GRAM IN 1 TOTAL)
     Route: 048
     Dates: start: 20240305, end: 20240305

REACTIONS (6)
  - Hepatocellular injury [Recovered/Resolved]
  - Hypocoagulable state [Recovered/Resolved]
  - Toxicity to various agents [Unknown]
  - Suicide attempt [Unknown]
  - Metabolic acidosis [Unknown]
  - Somnolence [Unknown]

NARRATIVE: CASE EVENT DATE: 20240305
